FAERS Safety Report 17000248 (Version 1)
Quarter: 2019Q4

REPORT INFORMATION
  Report Type: Spontaneous
  Country: US (occurrence: US)
  Receive Date: 20191106
  Receipt Date: 20191106
  Transmission Date: 20200122
  Serious: Yes (Death)
  Sender: FDA-Public Use
  Company Number: US-PFIZER INC-2018293623

PATIENT
  Age: 73 Year
  Sex: Female
  Weight: 68.4 kg

DRUGS (1)
  1. IBRANCE [Suspect]
     Active Substance: PALBOCICLIB
     Indication: BREAST CANCER FEMALE
     Dosage: 100 MG, 1X/DAY (FOR 21 DAYS THEN OFF FOR 7 DAYS)
     Route: 048

REACTIONS (1)
  - Death [Fatal]
